FAERS Safety Report 15839323 (Version 1)
Quarter: 2019Q1

REPORT INFORMATION
  Report Type: Spontaneous
  Country: GB (occurrence: GB)
  Receive Date: 20190117
  Receipt Date: 20190117
  Transmission Date: 20190417
  Serious: Yes (Other)
  Sender: FDA-Public Use
  Company Number: GB-MYLANLABS-2019M1003616

PATIENT
  Age: 53 Year
  Sex: Female

DRUGS (9)
  1. PEMETREXED. [Suspect]
     Active Substance: PEMETREXED
     Indication: METASTASES TO LUNG
     Dosage: UNK
  2. CISPLATIN. [Suspect]
     Active Substance: CISPLATIN
     Indication: LUNG CARCINOMA CELL TYPE UNSPECIFIED RECURRENT
  3. ERLOTINIB [Suspect]
     Active Substance: ERLOTINIB
     Indication: LYMPHADENOPATHY MEDIASTINAL
     Dosage: UNK
  4. ERLOTINIB [Suspect]
     Active Substance: ERLOTINIB
     Indication: LUNG CARCINOMA CELL TYPE UNSPECIFIED RECURRENT
  5. PEMETREXED. [Suspect]
     Active Substance: PEMETREXED
     Indication: LUNG CARCINOMA CELL TYPE UNSPECIFIED RECURRENT
  6. PEMETREXED. [Suspect]
     Active Substance: PEMETREXED
     Indication: LYMPHADENOPATHY MEDIASTINAL
  7. CISPLATIN. [Suspect]
     Active Substance: CISPLATIN
     Indication: LYMPHADENOPATHY MEDIASTINAL
     Dosage: UNK
  8. ERLOTINIB [Suspect]
     Active Substance: ERLOTINIB
     Indication: METASTASES TO LUNG
  9. CISPLATIN. [Suspect]
     Active Substance: CISPLATIN
     Indication: METASTASES TO LUNG

REACTIONS (3)
  - Metastases to liver [Unknown]
  - Metastases to lung [Unknown]
  - Disease progression [Unknown]
